FAERS Safety Report 12449897 (Version 2)
Quarter: 2016Q3

REPORT INFORMATION
  Report Type: Spontaneous
  Country: US (occurrence: US)
  Receive Date: 20160609
  Receipt Date: 20160830
  Transmission Date: 20161109
  Serious: No
  Sender: FDA-Public Use
  Company Number: US-JNJFOC-20160600981

PATIENT
  Age: 25 Year
  Sex: Male

DRUGS (6)
  1. RISPERDAL CONSTA [Suspect]
     Active Substance: RISPERIDONE
     Indication: UNEVALUABLE EVENT
     Route: 030
     Dates: start: 199410, end: 199703
  2. RISPERDAL [Suspect]
     Active Substance: RISPERIDONE
     Indication: UNEVALUABLE EVENT
     Route: 048
     Dates: start: 199410, end: 199703
  3. RISPERDAL CONSTA [Suspect]
     Active Substance: RISPERIDONE
     Indication: UNEVALUABLE EVENT
     Route: 030
     Dates: start: 201302, end: 201507
  4. RISPERDAL [Suspect]
     Active Substance: RISPERIDONE
     Indication: UNEVALUABLE EVENT
     Route: 048
     Dates: start: 201302, end: 201507
  5. RISPERDAL CONSTA [Suspect]
     Active Substance: RISPERIDONE
     Indication: UNEVALUABLE EVENT
     Route: 030
     Dates: start: 200505, end: 200803
  6. RISPERDAL [Suspect]
     Active Substance: RISPERIDONE
     Indication: UNEVALUABLE EVENT
     Route: 048
     Dates: start: 200505, end: 200803

REACTIONS (4)
  - Off label use [Unknown]
  - Hyperprolactinaemia [Unknown]
  - Gynaecomastia [Unknown]
  - Product use issue [Unknown]

NARRATIVE: CASE EVENT DATE: 199410
